FAERS Safety Report 9988396 (Version 2)
Quarter: 2014Q2

REPORT INFORMATION
  Report Type: Spontaneous
  Country: US (occurrence: US)
  Receive Date: 20140310
  Receipt Date: 20140417
  Transmission Date: 20141212
  Serious: Yes (Hospitalization)
  Sender: FDA-Public Use
  Company Number: US-BIOGENIDEC-2014BI020525

PATIENT
  Age: 57 Year
  Sex: Male

DRUGS (5)
  1. AVONEX [Suspect]
     Indication: MULTIPLE SCLEROSIS
     Route: 030
     Dates: start: 20130228
  2. BACLOFEN [Concomitant]
  3. IMIPRAMINE HCL [Concomitant]
  4. KLONOPIN [Concomitant]
  5. MACROBID [Concomitant]

REACTIONS (1)
  - Renal disorder [Unknown]
